FAERS Safety Report 6814453-2 (Version None)
Quarter: 2010Q3

REPORT INFORMATION
  Report Type: 
  Country: None (occurrence: None)
  Receive Date: 20100702
  Receipt Date: 20100621
  Transmission Date: 20110219
  Serious: Yes (Other)
  Sender: FDA-Public Use
  Company Number: PHHY2009CA24728

PATIENT
  Sex: Female
  Weight: 76.5 kg

DRUGS (5)
  1. ACLASTA [Suspect]
     Indication: OSTEOPOROSIS
     Dosage: 5 MG,UNK
     Dates: start: 20090615
  2. ACLASTA [Suspect]
     Dosage: 5 GM
     Dates: start: 20100616
  3. LIPITOR [Concomitant]
     Indication: HYPERCHOLESTEROLAEMIA
     Dosage: 10 MG, QHS
     Route: 048
  4. ATACAND [Concomitant]
     Indication: HYPERTENSION
     Dosage: 32 MG, QD
     Route: 048
  5. SYNTHROID [Concomitant]
     Route: 048

REACTIONS (9)
  - CHILLS [None]
  - DYSGEUSIA [None]
  - LIP SWELLING [None]
  - MIGRAINE [None]
  - PAIN [None]
  - PRURITUS [None]
  - PYREXIA [None]
  - TONGUE OEDEMA [None]
  - URTICARIA [None]
